FAERS Safety Report 23135763 (Version 2)
Quarter: 2025Q1

REPORT INFORMATION
  Report Type: Spontaneous
  Country: US (occurrence: US)
  Receive Date: 20231101
  Receipt Date: 20250301
  Transmission Date: 20250409
  Serious: No
  Sender: SANOFI AVENTIS
  Company Number: US-SA-SAC20231031000415

PATIENT
  Age: 30 Year
  Sex: Male

DRUGS (2)
  1. DUPIXENT [Suspect]
     Active Substance: DUPILUMAB
     Indication: Nasal polyps
     Dosage: 300 MG, QOW
     Route: 058
  2. KEPPRA [Suspect]
     Active Substance: LEVETIRACETAM

REACTIONS (2)
  - Injection site pain [Not Recovered/Not Resolved]
  - Arthralgia [Unknown]
